FAERS Safety Report 7642435-X (Version None)
Quarter: 2011Q3

REPORT INFORMATION
  Report Type: 
  Country: None (occurrence: None)
  Receive Date: 20110728
  Receipt Date: 20110105
  Transmission Date: 20111222
  Serious: No
  Sender: FDA-Public Use
  Company Number: US-MYLANLABS-2011S1000598

PATIENT
  Sex: Female

DRUGS (2)
  1. LEVOTHYROXINE SODIUM [Suspect]
     Indication: HYPOTHYROIDISM
     Route: 048
     Dates: start: 20101201, end: 20110101
  2. LEVOTHYROXINE SODIUM [Suspect]
     Route: 048
     Dates: start: 20110101

REACTIONS (4)
  - FATIGUE [None]
  - HEADACHE [None]
  - CONFUSIONAL STATE [None]
  - DIZZINESS [None]
